FAERS Safety Report 7283886-5 (Version None)
Quarter: 2011Q1

REPORT INFORMATION
  Report Type: 
  Country: None (occurrence: None)
  Receive Date: 20110209
  Receipt Date: 20110126
  Transmission Date: 20110831
  Serious: Yes (Other)
  Sender: FDA-Public Use
  Company Number: BR-GENENTECH-307326

PATIENT
  Sex: Female
  Weight: 88 kg

DRUGS (12)
  1. CRESTOR [Concomitant]
     Indication: PRODUCT USED FOR UNKNOWN INDICATION
     Dosage: 20 MG, UNK
  2. NAPROXEN [Concomitant]
     Indication: PRODUCT USED FOR UNKNOWN INDICATION
     Dosage: 500 MG, UNK
  3. METICORTEN [Concomitant]
     Indication: PRODUCT USED FOR UNKNOWN INDICATION
     Dosage: 5 MG, UNK
  4. RITUXIMAB [Suspect]
     Indication: RHEUMATOID ARTHRITIS
     Dosage: 1000 MG, Q15D
     Route: 042
     Dates: start: 20080721, end: 20080804
  5. ARAVA [Concomitant]
     Indication: PRODUCT USED FOR UNKNOWN INDICATION
     Dosage: UNK
  6. ACETAMINOPHEN [Concomitant]
     Indication: PREMEDICATION
     Dosage: UNK
     Dates: start: 20080721, end: 20100607
  7. RITUXIMAB [Suspect]
     Dosage: 1000 MG, Q15D
     Route: 042
     Dates: start: 20100524, end: 20100607
  8. CRESTOR [Concomitant]
     Dosage: 20 MG, UNK
  9. RITUXIMAB [Suspect]
     Dosage: 1000 MG, Q15D
     Route: 042
     Dates: start: 20090701, end: 20090801
  10. MODURETIC 5-50 [Concomitant]
     Indication: PRODUCT USED FOR UNKNOWN INDICATION
     Dosage: 5 MG, UNK
  11. EUTHYROX [Concomitant]
     Indication: THYROID CANCER
     Dosage: UNK
  12. NAPROXEN [Concomitant]
     Dosage: 500 MG, UNK

REACTIONS (19)
  - SPINAL DISORDER [None]
  - SENSATION OF HEAVINESS [None]
  - FATIGUE [None]
  - PAIN IN EXTREMITY [None]
  - HUNGER [None]
  - ASTHENIA [None]
  - URINARY INCONTINENCE [None]
  - FORMICATION [None]
  - MUSCLE SPASMS [None]
  - DIARRHOEA [None]
  - BACK PAIN [None]
  - SENSORY DISTURBANCE [None]
  - OEDEMA PERIPHERAL [None]
  - BONE PAIN [None]
  - WEIGHT INCREASED [None]
  - APPLICATION SITE REACTION [None]
  - MUSCULAR WEAKNESS [None]
  - DYSPNOEA [None]
  - ARTHRALGIA [None]
